FAERS Safety Report 11089621 (Version 2)
Quarter: 2015Q2

REPORT INFORMATION
  Report Type: Report from Study
  Country: US (occurrence: US)
  Receive Date: 20150505
  Receipt Date: 20150521
  Transmission Date: 20150821
  Serious: Yes (Hospitalization)
  Sender: FDA-Public Use
  Company Number: US-BIOGENIDEC-2015BI056238

PATIENT
  Age: 55 Year
  Sex: Female

DRUGS (16)
  1. PROBIOTIC [Concomitant]
     Active Substance: PROBIOTICS NOS
  2. SIGULAR [Concomitant]
  3. HYDROCODONE [Concomitant]
     Active Substance: HYDROCODONE
  4. AMPYRA [Concomitant]
     Active Substance: DALFAMPRIDINE
  5. LISINOPRIL. [Concomitant]
     Active Substance: LISINOPRIL
  6. MODAFINIL. [Concomitant]
     Active Substance: MODAFINIL
  7. ZOFRAN [Concomitant]
     Active Substance: ONDANSETRON HYDROCHLORIDE
  8. WELLBUTRIN [Concomitant]
     Active Substance: BUPROPION HYDROCHLORIDE
  9. IBUPROFEN. [Concomitant]
     Active Substance: IBUPROFEN
  10. ASPIRIN. [Concomitant]
     Active Substance: ASPIRIN
  11. TECFIDERA [Suspect]
     Active Substance: DIMETHYL FUMARATE
     Indication: MULTIPLE SCLEROSIS
     Route: 048
     Dates: start: 20140131
  12. VITAMIN D [Concomitant]
     Active Substance: CHOLECALCIFEROL
  13. NEXIUM [Concomitant]
     Active Substance: ESOMEPRAZOLE MAGNESIUM
  14. TIZANIDINE (TIZANIDINE) [Concomitant]
     Active Substance: TIZANIDINE
  15. CALCIUM D [Concomitant]
     Active Substance: CALCIUM\VITAMIN D
  16. BIOTIN [Concomitant]
     Active Substance: BIOTIN

REACTIONS (4)
  - Loss of control of legs [Not Recovered/Not Resolved]
  - Multiple sclerosis relapse [Not Recovered/Not Resolved]
  - Fall [Not Recovered/Not Resolved]
  - Concussion [Not Recovered/Not Resolved]

NARRATIVE: CASE EVENT DATE: 201409
